FAERS Safety Report 7721796-7 (Version None)
Quarter: 2011Q3

REPORT INFORMATION
  Report Type: 
  Country: None (occurrence: None)
  Receive Date: 20110831
  Receipt Date: 20110824
  Transmission Date: 20111222
  Serious: Yes (Hospitalization, Other)
  Sender: FDA-Public Use
  Company Number: BR-SANOFI-AVENTIS-2011SA054893

PATIENT
  Sex: Male

DRUGS (2)
  1. AUTOPEN 24 [Suspect]
  2. LANTUS [Suspect]
     Indication: TYPE 2 DIABETES MELLITUS
     Route: 058

REACTIONS (8)
  - MOBILITY DECREASED [None]
  - LOCALISED INFECTION [None]
  - EXTREMITY NECROSIS [None]
  - BLOOD GLUCOSE INCREASED [None]
  - LIMB INJURY [None]
  - MUSCULAR WEAKNESS [None]
  - BLOOD GLUCOSE DECREASED [None]
  - CEREBROVASCULAR ACCIDENT [None]
